FAERS Safety Report 7859716-7 (Version None)
Quarter: 2011Q4

REPORT INFORMATION
  Report Type: 
  Country: None (occurrence: None)
  Receive Date: 20111027
  Receipt Date: 20111018
  Transmission Date: 20120403
  Serious: Yes (Hospitalization)
  Sender: FDA-Public Use
  Company Number: BR-ASTRAZENECA-2011SE57902

PATIENT
  Age: 69 Year
  Sex: Female

DRUGS (2)
  1. ATACAND HCT [Suspect]
     Indication: HYPERTENSION
     Dosage: 8+12.5MG OD
     Route: 048
  2. ATACAND HCT [Suspect]
     Dosage: 16+12.5MG PRN
     Route: 048

REACTIONS (4)
  - ILL-DEFINED DISORDER [None]
  - HYPERTENSION [None]
  - BLOOD PRESSURE FLUCTUATION [None]
  - DRUG INEFFECTIVE [None]
